FAERS Safety Report 12293446 (Version 2)
Quarter: 2016Q3

REPORT INFORMATION
  Report Type: Report from Study
  Country: BR (occurrence: BR)
  Receive Date: 20160421
  Receipt Date: 20160830
  Transmission Date: 20161109
  Serious: Yes (Hospitalization)
  Sender: FDA-Public Use
  Company Number: PHHY2016BR052551

PATIENT
  Sex: Female
  Weight: 75 kg

DRUGS (1)
  1. EXJADE [Suspect]
     Active Substance: DEFERASIROX
     Indication: MYELODYSPLASTIC SYNDROME
     Dosage: 2000 MG, QD (35 MG/KG)
     Route: 048
     Dates: start: 2011

REACTIONS (7)
  - Immunodeficiency [Unknown]
  - Full blood count decreased [Unknown]
  - Skin ulcer [Unknown]
  - Hypotension [Unknown]
  - Ischaemia [Unknown]
  - Infection [Unknown]
  - Weight increased [Unknown]
